FAERS Safety Report 5669222-6 (Version None)
Quarter: 2008Q1

REPORT INFORMATION
  Report Type: 
  Country: None (occurrence: None)
  Receive Date: 20080317
  Receipt Date: 20080314
  Transmission Date: 20080703
  Serious: Yes (Hospitalization)
  Sender: FDA-Public Use
  Company Number: IT-BRISTOL-MYERS SQUIBB COMPANY-14111538

PATIENT
  Age: 73 Year
  Sex: Female

DRUGS (4)
  1. COUMADIN [Suspect]
     Indication: PROPHYLAXIS
     Route: 048
     Dates: start: 20020101, end: 20080219
  2. AULIN [Suspect]
     Indication: ARTHRALGIA
     Route: 048
     Dates: start: 20070101, end: 20080219
  3. VOLTAREN [Suspect]
     Indication: ARTHRALGIA
     Route: 048
     Dates: start: 20070101, end: 20080219
  4. ENTACT [Concomitant]
     Indication: DEPRESSION
     Dosage: 1 DOSAGE FORM = 0.5 DOSAGE FORM
     Route: 048

REACTIONS (5)
  - ANAEMIA [None]
  - GASTRIC ULCER [None]
  - HAEMATEMESIS [None]
  - MELAENA [None]
  - SYNCOPE [None]
